FAERS Safety Report 20436072 (Version 3)
Quarter: 2022Q1

REPORT INFORMATION
  Report Type: Spontaneous
  Country: IN (occurrence: IN)
  Receive Date: 20220207
  Receipt Date: 20220307
  Transmission Date: 20220423
  Serious: Yes (Other)
  Sender: FDA-Public Use
  Company Number: IN-LUPIN PHARMACEUTICALS INC.-2022-01501

PATIENT
  Age: 30 Year
  Sex: Male

DRUGS (1)
  1. CEFUROXIME SODIUM [Suspect]
     Active Substance: CEFUROXIME SODIUM
     Indication: Respiratory tract infection
     Dosage: 1 DOSAGE FORM
     Route: 042

REACTIONS (2)
  - Anaphylactic shock [Recovered/Resolved]
  - Product quality issue [Unknown]
